FAERS Safety Report 14453939 (Version 1)
Quarter: 2018Q1

REPORT INFORMATION
  Report Type: Spontaneous
  Country: US (occurrence: US)
  Receive Date: 20180129
  Receipt Date: 20180129
  Transmission Date: 20180509
  Serious: Yes (Disabling)
  Sender: FDA-Public Use
  Company Number: US-OTSUKA-2018_001018

PATIENT
  Sex: Male

DRUGS (3)
  1. SPRYCEL [Concomitant]
     Active Substance: DASATINIB
     Indication: PRODUCT USED FOR UNKNOWN INDICATION
     Dosage: UNK
     Route: 065
  2. ABILIFY [Suspect]
     Active Substance: ARIPIPRAZOLE
     Dosage: 5 MG, AS NEEDED
     Route: 065
  3. ABILIFY [Suspect]
     Active Substance: ARIPIPRAZOLE
     Indication: MENTAL DISORDER
     Dosage: 10 MG, QD
     Route: 065

REACTIONS (9)
  - Abnormal behaviour [Not Recovered/Not Resolved]
  - Inability to afford medication [Unknown]
  - Somnolence [Unknown]
  - Aggression [Not Recovered/Not Resolved]
  - Disability [Not Recovered/Not Resolved]
  - Extra dose administered [Unknown]
  - Product use in unapproved indication [Unknown]
  - Vomiting [Unknown]
  - White blood cell count decreased [Unknown]
